FAERS Safety Report 17265948 (Version 2)
Quarter: 2020Q2

REPORT INFORMATION
  Report Type: Spontaneous
  Country: JP (occurrence: JP)
  Receive Date: 20200114
  Receipt Date: 20200605
  Transmission Date: 20200713
  Serious: Yes (Other)
  Sender: FDA-Public Use
  Company Number: JP-SUN PHARMACEUTICAL INDUSTRIES LTD-2019RR-233132

PATIENT
  Age: 74 Year
  Sex: Male

DRUGS (8)
  1. CAPECITABINE. [Suspect]
     Active Substance: CAPECITABINE
     Indication: COLON CANCER
     Dosage: 1500 MILLIGRAM/KILOGRAM, TRIWEEKLY CYCLE, SEVEN COURSES
     Route: 048
  2. IRINOTECAN [Suspect]
     Active Substance: IRINOTECAN
     Indication: COLON CANCER
     Dosage: 150 MICROGRAM/SQ. METER, ON DAY 1 BIWEEKLY CYCLE
     Route: 065
  3. BEVACIZUMAB. [Suspect]
     Active Substance: BEVACIZUMAB
     Indication: COLON CANCER
     Dosage: 7.5 MILLIGRAM/KILOGRAM ON DAY 1, SEVEN COURSES
     Route: 065
  4. TEGAFUR/GIMERACIL/OTERACIL [Suspect]
     Active Substance: GIMERACIL\OTERACIL\TEGAFUR
     Indication: COLON CANCER
     Dosage: UNK
     Route: 065
  5. IRINOTECAN [Suspect]
     Active Substance: IRINOTECAN
     Dosage: 100 MILLIGRAM/SQ. METER ON DAYS 1 AND 15
     Route: 065
  6. PANITUMUMAB [Suspect]
     Active Substance: PANITUMUMAB
     Indication: COLON CANCER
     Dosage: 6 MILLIGRAM/KILOGRAM, ON DAY 1 ON A BIWEEKLY CYCLE
     Route: 065
  7. OXALIPLATIN. [Suspect]
     Active Substance: OXALIPLATIN
     Indication: COLON CANCER
     Dosage: 130 MICROGRAM/SQ. METER, ON DAY 1; SEVEN COURSES
     Route: 065
  8. BEVACIZUMAB. [Suspect]
     Active Substance: BEVACIZUMAB
     Dosage: 5 MILLIGRAM/SQ. METER ON DAYS 1 AND 15
     Route: 065

REACTIONS (3)
  - Dysgeusia [Recovered/Resolved]
  - Neuropathy peripheral [Unknown]
  - Therapeutic product effect incomplete [Unknown]
